FAERS Safety Report 4999625-4 (Version None)
Quarter: 2006Q2

REPORT INFORMATION
  Report Type: 
  Country: None (occurrence: None)
  Receive Date: 20060511
  Receipt Date: 20060106
  Transmission Date: 20061013
  Serious: Yes (Other)
  Sender: FDA-Public Use
  Company Number: PHEH2006US00631

PATIENT
  Age: 73 Year
  Sex: Female

DRUGS (1)
  1. ZOMETA [Suspect]
     Indication: BREAST CANCER

REACTIONS (12)
  - ACTINOMYCOSIS [None]
  - BIOPSY SITE UNSPECIFIED ABNORMAL [None]
  - BONE DISORDER [None]
  - ERYTHEMA [None]
  - LOCAL SWELLING [None]
  - LYMPH NODE PAIN [None]
  - LYMPHADENOPATHY [None]
  - OSTEOMYELITIS CHRONIC [None]
  - OSTEONECROSIS [None]
  - PAIN [None]
  - STREPTOCOCCAL INFECTION [None]
  - TOOTH EXTRACTION [None]
